FAERS Safety Report 11643521 (Version 1)
Quarter: 2015Q4

REPORT INFORMATION
  Report Type: Spontaneous
  Country: US (occurrence: US)
  Receive Date: 20151020
  Receipt Date: 20151020
  Transmission Date: 20160304
  Serious: Yes (Death)
  Sender: FDA-Public Use
  Company Number: PHEH2015US020779

PATIENT
  Sex: Female

DRUGS (1)
  1. VOTRIENT [Suspect]
     Active Substance: PAZOPANIB HYDROCHLORIDE
     Indication: COLON CANCER
     Dosage: 600 MG, QD
     Route: 048
     Dates: start: 20150703

REACTIONS (2)
  - Off label use [Unknown]
  - Death [Fatal]
